FAERS Safety Report 9260646 (Version 1)
Quarter: 2013Q2

REPORT INFORMATION
  Report Type: Spontaneous
  Country: US (occurrence: US)
  Receive Date: 20130429
  Receipt Date: 20130429
  Transmission Date: 20140414
  Serious: No
  Sender: FDA-Public Use
  Company Number: US-PFIZER INC-2013131649

PATIENT
  Age: 66 Year
  Sex: Male
  Weight: 94.33 kg

DRUGS (1)
  1. VIAGRA [Suspect]
     Indication: ERECTILE DYSFUNCTION
     Dosage: UNK
     Route: 048
     Dates: start: 1998

REACTIONS (3)
  - Drug ineffective [Unknown]
  - Hypertension [Unknown]
  - Malaise [Unknown]
